FAERS Safety Report 7793871-2 (Version None)
Quarter: 2011Q4

REPORT INFORMATION
  Report Type: 
  Country: None (occurrence: None)
  Receive Date: 20111004
  Receipt Date: 20110927
  Transmission Date: 20120403
  Serious: Yes (Death)
  Sender: FDA-Public Use
  Company Number: US-BIOGENIDEC-2011BI021163

PATIENT
  Age: 54 Year
  Sex: Male

DRUGS (2)
  1. AVONEX [Suspect]
     Indication: MULTIPLE SCLEROSIS
     Route: 030
     Dates: start: 20100711, end: 20110101
  2. COPAXONE [Concomitant]
     Indication: MULTIPLE SCLEROSIS

REACTIONS (1)
  - DEATH [None]
